FAERS Safety Report 7809770-3 (Version None)
Quarter: 2011Q4

REPORT INFORMATION
  Report Type: 
  Country: None (occurrence: None)
  Receive Date: 20111012
  Receipt Date: 20111006
  Transmission Date: 20120403
  Serious: Yes (Other)
  Sender: FDA-Public Use
  Company Number: PHHY2011DE82886

PATIENT
  Sex: Female

DRUGS (7)
  1. PROMETHAZINE [Concomitant]
  2. CLOZAPINE [Suspect]
     Indication: PSYCHOTIC DISORDER
     Dosage: 450 MG, DAILY SINCE ABOUT 20 YEARS
  3. QUILONUM RET [Concomitant]
     Dosage: 1 DF, BID
     Route: 048
  4. LEVOTHYROXINE SODIUM [Concomitant]
  5. CLOZAPINE [Suspect]
     Indication: SCHIZOPHRENIA
  6. LORAZEPAM [Concomitant]
     Route: 048
  7. BETA BLOCKING AGENTS [Concomitant]

REACTIONS (1)
  - BREAST CANCER [None]
